FAERS Safety Report 4557992-X (Version None)
Quarter: 2005Q1

REPORT INFORMATION
  Report Type: 
  Country: None (occurrence: None)
  Receive Date: 20050121
  Receipt Date: 20040421
  Transmission Date: 20050727
  Serious: No
  Sender: FDA-Public Use
  Company Number: US-BRISTOL-MYERS SQUIBB COMPANY-12567533

PATIENT
  Age: 58 Year
  Sex: Female
  Weight: 48 kg

DRUGS (2)
  1. SERZONE [Suspect]
     Indication: DEPRESSION
     Dosage: 6 YRS AGO 400MG 2X/DAY THEN 200MG 2X/DAY, 1 MO AGO TO 200MG 1X/DAY, FIVE DAYS AGO 100MG 1X/DAY
     Route: 048
  2. KLONOPIN [Concomitant]
     Route: 048

REACTIONS (2)
  - FEELING ABNORMAL [None]
  - HYPERHIDROSIS [None]
